FAERS Safety Report 6716278-5 (Version None)
Quarter: 2010Q2

REPORT INFORMATION
  Report Type: 
  Country: None (occurrence: None)
  Receive Date: 20100507
  Receipt Date: 20100427
  Transmission Date: 20101027
  Serious: Yes (Hospitalization)
  Sender: FDA-Public Use
  Company Number: IE-ABBOTT-10P-229-0641470-00

PATIENT
  Sex: Male

DRUGS (5)
  1. HUMIRA [Suspect]
     Indication: CROHN'S DISEASE
     Dosage: 160 MG
     Route: 058
     Dates: start: 20100312
  2. HUMIRA [Suspect]
     Dosage: 80 MG
     Route: 058
  3. HUMIRA [Suspect]
     Route: 058
  4. PHENYTOIN SODIUM CAP [Concomitant]
     Indication: EPILEPSY
  5. LACTULOSE [Concomitant]
     Indication: DRUG USE FOR UNKNOWN INDICATION

REACTIONS (2)
  - CONVULSION [None]
  - HAEMOGLOBIN DECREASED [None]
